FAERS Safety Report 7492340-7 (Version None)
Quarter: 2011Q2

REPORT INFORMATION
  Report Type: 
  Country: None (occurrence: None)
  Receive Date: 20110519
  Receipt Date: 20110516
  Transmission Date: 20111010
  Serious: Yes (Life-Threatening)
  Sender: FDA-Public Use
  Company Number: FR-PFIZER INC-2011095367

PATIENT
  Age: 83 Year
  Sex: Male

DRUGS (1)
  1. TORISEL [Suspect]
     Indication: NON-HODGKIN'S LYMPHOMA
     Dosage: UNK
     Route: 042
     Dates: start: 20110301, end: 20110401

REACTIONS (1)
  - LYMPHOCYTOSIS [None]
